FAERS Safety Report 9147912 (Version 2)
Quarter: 2013Q1

REPORT INFORMATION
  Report Type: Spontaneous
  Country: US (occurrence: US)
  Receive Date: 20130305
  Receipt Date: 20130312
  Transmission Date: 20140127
  Serious: Yes (Other)
  Sender: FDA-Public Use
  Company Number: US-RB-050615-13

PATIENT
  Age: 80 Year
  Sex: Female

DRUGS (4)
  1. DELSYM ADULT GRAPE [Suspect]
     Indication: COUGH
     Dosage: TOOK 1 DOSE ON 14-FEB-2013.
     Route: 048
     Dates: start: 20130214
  2. SIMVASTATIN [Concomitant]
     Indication: BLOOD CHOLESTEROL
  3. VITAMIN C [Concomitant]
     Indication: PRODUCT USED FOR UNKNOWN INDICATION
  4. ASPIRIN [Concomitant]
     Indication: PRODUCT USED FOR UNKNOWN INDICATION

REACTIONS (3)
  - Disorientation [Recovered/Resolved]
  - Confusional state [Recovered/Resolved]
  - Dizziness [Recovered/Resolved]
